FAERS Safety Report 6435728-5 (Version None)
Quarter: 2009Q4

REPORT INFORMATION
  Report Type: 
  Country: None (occurrence: None)
  Receive Date: 20091111
  Receipt Date: 20091104
  Transmission Date: 20100525
  Serious: Yes (Death)
  Sender: FDA-Public Use
  Company Number: IN-ELI_LILLY_AND_COMPANY-IN200911000874

PATIENT
  Age: 64 Year
  Sex: Female

DRUGS (4)
  1. XIGRIS [Suspect]
     Indication: MULTI-ORGAN FAILURE
     Dosage: UNK, UNKNOWN
     Route: 042
     Dates: start: 20091104
  2. NORADRENALINE [Concomitant]
     Indication: HYPOTENSION
     Dosage: UNK, UNKNOWN
     Route: 065
  3. DOPAMINE HCL [Concomitant]
     Indication: HYPOTENSION
     Dosage: UNK, UNKNOWN
     Route: 065
  4. VASOPRESSIN [Concomitant]
     Indication: RENAL FAILURE
     Dosage: UNK, UNKNOWN
     Route: 065

REACTIONS (1)
  - CARDIAC ARREST [None]
